FAERS Safety Report 22080098 (Version 4)
Quarter: 2025Q3

REPORT INFORMATION
  Report Type: Report from Study
  Country: CN (occurrence: CN)
  Receive Date: 20230309
  Receipt Date: 20250910
  Transmission Date: 20251020
  Serious: Yes (Other)
  Sender: BAYER HEALTHCARE PHARMACEUTICALS INC.
  Company Number: CN-BAYER-2023A024819

PATIENT
  Age: 70 Year
  Sex: Male

DRUGS (25)
  1. SORAFENIB [Suspect]
     Active Substance: SORAFENIB
     Indication: Acute myeloid leukaemia
     Dosage: 400 MG, BID
  2. SORAFENIB [Suspect]
     Active Substance: SORAFENIB
     Indication: FLT3 gene mutation
  3. SORAFENIB [Suspect]
     Active Substance: SORAFENIB
     Indication: DNMT3A gene mutation
  4. SORAFENIB [Suspect]
     Active Substance: SORAFENIB
     Indication: NPM1 gene mutation
  5. SORAFENIB [Suspect]
     Active Substance: SORAFENIB
     Indication: Gene mutation
  6. VENETOCLAX [Suspect]
     Active Substance: VENETOCLAX
     Indication: Acute myeloid leukaemia
     Dosage: 100 MG, QD, THE FIRST DAY
     Route: 048
  7. VENETOCLAX [Suspect]
     Active Substance: VENETOCLAX
     Indication: FLT3 gene mutation
     Dosage: 200 MG, QD, THE SECOND DAY
     Route: 048
  8. VENETOCLAX [Suspect]
     Active Substance: VENETOCLAX
     Indication: DNMT3A gene mutation
     Dosage: 300 MG, QD, THE THIRD DAY
  9. VENETOCLAX [Suspect]
     Active Substance: VENETOCLAX
     Indication: NPM1 gene mutation
     Dosage: 400 MG, QD, THE FOURTH TO 28TH DAYS
     Route: 048
  10. VENETOCLAX [Suspect]
     Active Substance: VENETOCLAX
     Indication: Gene mutation
  11. AZACITIDINE [Suspect]
     Active Substance: AZACITIDINE
     Indication: Acute myeloid leukaemia
     Dosage: 75 MG/M2, QD, THE FIRST 7 DAYS
  12. AZACITIDINE [Suspect]
     Active Substance: AZACITIDINE
     Indication: FLT3 gene mutation
  13. AZACITIDINE [Suspect]
     Active Substance: AZACITIDINE
     Indication: DNMT3A gene mutation
  14. AZACITIDINE [Suspect]
     Active Substance: AZACITIDINE
     Indication: NPM1 gene mutation
  15. AZACITIDINE [Suspect]
     Active Substance: AZACITIDINE
     Indication: Gene mutation
  16. INTERFERON [Concomitant]
     Active Substance: INTERFERON
     Indication: Acute myeloid leukaemia
  17. INTERFERON [Concomitant]
     Active Substance: INTERFERON
     Indication: FLT3 gene mutation
  18. INTERFERON [Concomitant]
     Active Substance: INTERFERON
     Indication: DNMT3A gene mutation
  19. INTERFERON [Concomitant]
     Active Substance: INTERFERON
     Indication: NPM1 gene mutation
  20. INTERFERON [Concomitant]
     Active Substance: INTERFERON
     Indication: Gene mutation
  21. ALDESLEUKIN [Concomitant]
     Active Substance: ALDESLEUKIN
     Indication: Acute myeloid leukaemia
  22. ALDESLEUKIN [Concomitant]
     Active Substance: ALDESLEUKIN
     Indication: FLT3 gene mutation
  23. ALDESLEUKIN [Concomitant]
     Active Substance: ALDESLEUKIN
     Indication: DNMT3A gene mutation
  24. ALDESLEUKIN [Concomitant]
     Active Substance: ALDESLEUKIN
     Indication: NPM1 gene mutation
  25. ALDESLEUKIN [Concomitant]
     Active Substance: ALDESLEUKIN
     Indication: Gene mutation

REACTIONS (1)
  - Agranulocytosis [Recovering/Resolving]
